FAERS Safety Report 7615754-0 (Version None)
Quarter: 2011Q3

REPORT INFORMATION
  Report Type: 
  Country: None (occurrence: None)
  Receive Date: 20110711
  Receipt Date: 20110624
  Transmission Date: 20111222
  Serious: Yes (Hospitalization, Other)
  Sender: FDA-Public Use
  Company Number: AMAG201100147

PATIENT
  Age: 64 Year
  Sex: Male
  Weight: 92.1 kg

DRUGS (16)
  1. CALCIUM ACETATE (CALCIUM ACETATE) CAPSULE [Concomitant]
  2. TYLENOL (PARACETAMOL) TABLET [Concomitant]
  3. EPOETIN (EPOETIN ALFA) INJECTION [Concomitant]
  4. FOLIC ACID [Concomitant]
  5. NEPHRO-VITE (ASCORBIC ACID, CYANOCOBALAMIN, FOLIC ACID, IRON, NICOTINA [Concomitant]
  6. ASPIRIN [Concomitant]
  7. DIGOXIN [Concomitant]
  8. FERROUS SULFATE (FERROUS SULFATE) TABLET [Concomitant]
  9. PLAVIX [Concomitant]
  10. COREG (CARVEDILOL) TABLET [Concomitant]
  11. OMEPRAZOLE (OMEPRAZOLE) CAPSULE [Concomitant]
  12. SIMVASTATIN [Concomitant]
  13. FERAHEME [Suspect]
     Indication: NEPHROGENIC ANAEMIA
     Dosage: 510 MG, SINGLE, INTRAVENOUS
     Route: 042
     Dates: start: 20110525, end: 20110525
  14. FERAHEME [Suspect]
     Indication: IRON DEFICIENCY ANAEMIA
     Dosage: 510 MG, SINGLE, INTRAVENOUS
     Route: 042
     Dates: start: 20110525, end: 20110525
  15. CALCITRIOL (CALCITRIOL) CAPSULE [Concomitant]
  16. INSULIN ASPART (INSULIN ASPART) [Concomitant]

REACTIONS (10)
  - NAUSEA [None]
  - DIARRHOEA [None]
  - DIABETES MELLITUS [None]
  - HYPERGLYCAEMIA [None]
  - DISEASE PROGRESSION [None]
  - BLOOD CREATININE INCREASED [None]
  - VOMITING [None]
  - LABORATORY TEST ABNORMAL [None]
  - TREATMENT NONCOMPLIANCE [None]
  - RENAL FAILURE CHRONIC [None]
